FAERS Safety Report 4573970-9 (Version None)
Quarter: 2005Q1

REPORT INFORMATION
  Report Type: 
  Country: None (occurrence: None)
  Receive Date: 20050204
  Receipt Date: 20050121
  Transmission Date: 20050727
  Serious: No
  Sender: FDA-Public Use
  Company Number: 9915

PATIENT
  Age: 31 Year
  Sex: Female

DRUGS (5)
  1. PACLITAXEL [Suspect]
     Indication: BREAST CANCER
     Dosage: 254 MG IV
     Route: 042
     Dates: start: 20050118, end: 20050118
  2. DECADRON [Concomitant]
  3. ANZEMET [Concomitant]
  4. BENADRYL [Concomitant]
  5. PEPCID [Concomitant]

REACTIONS (5)
  - ANXIETY [None]
  - CHEST DISCOMFORT [None]
  - CHEST PAIN [None]
  - DYSPNOEA [None]
  - INFUSION RELATED REACTION [None]
